FAERS Safety Report 5740269-4 (Version None)
Quarter: 2008Q2

REPORT INFORMATION
  Report Type: 
  Country: None (occurrence: None)
  Receive Date: 20080516
  Receipt Date: 20080507
  Transmission Date: 20081010
  Serious: Yes (Death, Hospitalization)
  Sender: FDA-Public Use
  Company Number: US-JNJFOC-20080501844

PATIENT
  Age: 56 Year
  Sex: Female

DRUGS (2)
  1. TOLECTIN [Suspect]
     Indication: ARTHRITIS
     Route: 065
  2. INDOCIN [Concomitant]
     Indication: ARTHRITIS
     Route: 065

REACTIONS (5)
  - CARDIAC ARREST [None]
  - DISSEMINATED INTRAVASCULAR COAGULATION [None]
  - GASTROINTESTINAL HAEMORRHAGE [None]
  - HAEMOLYSIS [None]
  - RENAL FAILURE ACUTE [None]
